FAERS Safety Report 4681793-5 (Version None)
Quarter: 2005Q2

REPORT INFORMATION
  Report Type: 
  Country: None (occurrence: None)
  Receive Date: 20050601
  Receipt Date: 20050512
  Transmission Date: 20051028
  Serious: Yes (Death, Hospitalization, Other)
  Sender: FDA-Public Use
  Company Number: US_0505117581

PATIENT
  Age: 93 Year
  Sex: Female

DRUGS (2)
  1. HUMULIN N [Suspect]
     Indication: DIABETES MELLITUS
     Dosage: 100 U DAY
     Dates: start: 20020101
  2. ENALAPRIL MALEATE [Concomitant]

REACTIONS (8)
  - BALANCE DISORDER [None]
  - CARDIAC DISORDER [None]
  - DEMENTIA ALZHEIMER'S TYPE [None]
  - DISEASE PROGRESSION [None]
  - FALL [None]
  - INFLUENZA [None]
  - SEPSIS [None]
  - THROMBOSIS [None]
